FAERS Safety Report 20752948 (Version 1)
Quarter: 2022Q2

REPORT INFORMATION
  Report Type: Spontaneous
  Country: US (occurrence: None)
  Receive Date: 20220426
  Receipt Date: 20220426
  Transmission Date: 20220720
  Serious: No
  Sender: FDA-Public Use
  Company Number: US-ROCHE-2980386

PATIENT
  Age: 68 Year
  Sex: Male

DRUGS (1)
  1. ESBRIET [Suspect]
     Active Substance: PIRFENIDONE
     Indication: Idiopathic pulmonary fibrosis
     Dosage: 1 - 801 MG TABLET THREE TIMES A DAY WITH MEALS; TOTAL 2403MG TOTAL DAILY DOSE
     Route: 048
     Dates: start: 20210630

REACTIONS (4)
  - Fatigue [Unknown]
  - Weight decreased [Unknown]
  - Insomnia [Unknown]
  - Product taste abnormal [Unknown]

NARRATIVE: CASE EVENT DATE: 20210930
